FAERS Safety Report 4980297-X (Version None)
Quarter: 2006Q2

REPORT INFORMATION
  Report Type: 
  Country: None (occurrence: None)
  Receive Date: 20060424
  Receipt Date: 20051227
  Transmission Date: 20061013
  Serious: Yes (Life-Threatening, Hospitalization)
  Sender: FDA-Public Use
  Company Number: JP-ABBOTT-05P-087-0320802-00

PATIENT
  Sex: Male

DRUGS (1)
  1. LIPIDIL [Suspect]
     Indication: HYPERLIPIDAEMIA
     Route: 048
     Dates: start: 20051114, end: 20051205

REACTIONS (3)
  - MALAISE [None]
  - POLYMYOSITIS [None]
  - PYREXIA [None]
